FAERS Safety Report 6341611-6 (Version None)
Quarter: 2009Q3

REPORT INFORMATION
  Report Type: 
  Country: None (occurrence: None)
  Receive Date: 20090904
  Receipt Date: 20090827
  Transmission Date: 20100115
  Serious: Yes (Hospitalization)
  Sender: FDA-Public Use
  Company Number: SE-ABBOTT-09P-150-0593894-00

PATIENT
  Sex: Male

DRUGS (11)
  1. DEPAKINE TABLET PR [Suspect]
     Indication: EPILEPSY
     Route: 048
     Dates: end: 20090601
  2. DEPAKINE TABLET PR [Suspect]
     Route: 048
     Dates: start: 20090601, end: 20090601
  3. DEPAKINE TABLET PR [Suspect]
     Dates: start: 20090601
  4. DIGOXIN [Concomitant]
     Indication: DRUG USE FOR UNKNOWN INDICATION
     Dates: end: 20090601
  5. DIGOXIN [Concomitant]
     Dates: start: 20090601
  6. NORSPAN [Concomitant]
     Indication: DRUG USE FOR UNKNOWN INDICATION
  7. GABAPENTIN [Concomitant]
     Indication: PAIN
  8. ACETAMINOPHEN [Concomitant]
     Indication: DRUG USE FOR UNKNOWN INDICATION
  9. WARFARIN SODIUM [Concomitant]
     Indication: DRUG USE FOR UNKNOWN INDICATION
  10. SELOKEN [Concomitant]
     Indication: DRUG USE FOR UNKNOWN INDICATION
  11. FORLAX [Concomitant]
     Indication: DRUG USE FOR UNKNOWN INDICATION

REACTIONS (3)
  - BRADYPHRENIA [None]
  - FATIGUE [None]
  - MUSCLE TWITCHING [None]
